FAERS Safety Report 6637531-X (Version None)
Quarter: 2010Q1

REPORT INFORMATION
  Report Type: 
  Country: None (occurrence: None)
  Receive Date: 20100317
  Receipt Date: 20100310
  Transmission Date: 20100710
  Serious: Yes (Other)
  Sender: FDA-Public Use
  Company Number: GB-BAXTER-2010BH006600

PATIENT
  Age: 12 Year
  Sex: Male
  Weight: 53 kg

DRUGS (5)
  1. FORANE [Suspect]
     Indication: GENERAL ANAESTHESIA
     Route: 055
  2. FENTANYL [Concomitant]
     Indication: INDUCTION OF ANAESTHESIA
     Route: 042
  3. PROPOFOL [Concomitant]
     Indication: INDUCTION OF ANAESTHESIA
     Route: 042
  4. ACETAMINOPHEN [Concomitant]
     Indication: ANALGESIC THERAPY
     Route: 048
  5. IBUPROFEN [Concomitant]
     Indication: ANALGESIC THERAPY
     Route: 048

REACTIONS (3)
  - CARDIAC ARREST [None]
  - HYPERKALAEMIA [None]
  - RHABDOMYOLYSIS [None]
